FAERS Safety Report 6507635-0 (Version None)
Quarter: 2009Q4

REPORT INFORMATION
  Report Type: 
  Country: None (occurrence: None)
  Receive Date: 20091221
  Receipt Date: 20091020
  Transmission Date: 20100525
  Serious: No
  Sender: FDA-Public Use
  Company Number: US-BRISTOL-MYERS SQUIBB COMPANY-14823876

PATIENT
  Sex: Female

DRUGS (3)
  1. PRAVACHOL [Suspect]
     Dosage: STARTED WITH 20 MG 3 MONTHS AGO AND DOSE WAS INCREASED TO 40 MG
     Dates: start: 20090101
  2. CALCIUM [Concomitant]
  3. ESTROGEN [Concomitant]

REACTIONS (2)
  - ALOPECIA [None]
  - DRUG INEFFECTIVE [None]
